FAERS Safety Report 18441566 (Version 2)
Quarter: 2020Q4

REPORT INFORMATION
  Report Type: Spontaneous
  Country: US (occurrence: US)
  Receive Date: 20201029
  Receipt Date: 20201029
  Transmission Date: 20210114
  Serious: Yes (Hospitalization)
  Sender: FDA-Public Use
  Company Number: US-PFIZER INC-2020403846

PATIENT

DRUGS (1)
  1. BLISTEX [CAMPHOR;PHENOL] [Suspect]
     Active Substance: CAMPHOR\PHENOL
     Dosage: UNK

REACTIONS (1)
  - Lip swelling [Unknown]
